FAERS Safety Report 9555897 (Version 1)
Quarter: 2013Q3

REPORT INFORMATION
  Report Type: Spontaneous
  Country: IT (occurrence: None)
  Receive Date: 20130924
  Receipt Date: 20130924
  Transmission Date: 20140515
  Serious: Yes (Other)
  Sender: FDA-Public Use
  Company Number: AUR-APL-2013-07835

PATIENT
  Age: 85 Year
  Sex: Female

DRUGS (6)
  1. CITALOPRAM [Suspect]
     Indication: PRODUCT USED FOR UNKNOWN INDICATION
     Dosage: (1 DOSAGE FORMS, 1 IN 1 D)
     Route: 048
     Dates: start: 20130705, end: 20130713
  2. LASIX (FUROSEMIDE) [Concomitant]
  3. HUMALOG (INSULIN LISPRO) [Concomitant]
  4. EUTIROX (LEVOTHYROXINE SODIUM) [Concomitant]
  5. FOLINA (FOLIC ACID) [Concomitant]
  6. TAVOR (LORAZEPAM) [Concomitant]

REACTIONS (4)
  - Convulsion [None]
  - Electrocardiogram QT prolonged [None]
  - Blood potassium increased [None]
  - Syncope [None]
